FAERS Safety Report 25730816 (Version 1)
Quarter: 2025Q3

REPORT INFORMATION
  Report Type: Spontaneous
  Country: US (occurrence: US)
  Receive Date: 20250827
  Receipt Date: 20250827
  Transmission Date: 20251021
  Serious: Yes (Other)
  Sender: PFIZER
  Company Number: US-PFIZER INC-202500168439

PATIENT
  Age: 22 Year
  Sex: Female

DRUGS (1)
  1. ZAVZPRET [Suspect]
     Active Substance: ZAVEGEPANT HYDROCHLORIDE
     Indication: Migraine
     Dates: start: 20250806, end: 20250806

REACTIONS (1)
  - Anaphylactic reaction [Unknown]

NARRATIVE: CASE EVENT DATE: 20250806
